FAERS Safety Report 13890493 (Version 3)
Quarter: 2017Q3

REPORT INFORMATION
  Report Type: Spontaneous
  Country: US (occurrence: US)
  Receive Date: 20170822
  Receipt Date: 20170927
  Transmission Date: 20171127
  Serious: Yes (Other)
  Sender: FDA-Public Use
  Company Number: US-009507513-1708USA009395

PATIENT

DRUGS (1)
  1. KEYTRUDA [Suspect]
     Active Substance: PEMBROLIZUMAB
     Indication: GASTROINTESTINAL CANCER METASTATIC
     Dosage: UNK

REACTIONS (3)
  - Sarcoidosis [Unknown]
  - Pneumonitis [Unknown]
  - Off label use [Unknown]
